FAERS Safety Report 9339304 (Version 1)
Quarter: 2013Q2

REPORT INFORMATION
  Report Type: Report from Study
  Country: US (occurrence: US)
  Receive Date: 20130610
  Receipt Date: 20130610
  Transmission Date: 20140414
  Serious: Yes (Hospitalization)
  Sender: FDA-Public Use
  Company Number: PHEH2013US010756

PATIENT
  Age: 41 Year
  Sex: Female
  Weight: 56.69 kg

DRUGS (4)
  1. GILENYA [Suspect]
     Indication: MULTIPLE SCLEROSIS
     Dosage: 0.5 MG, QD
     Route: 048
     Dates: start: 20120203, end: 201210
  2. LISINOPRIL [Concomitant]
     Dosage: 1 DF, DAILY
  3. LOVASTATIN [Concomitant]
     Dosage: 1 DF, DAILY
  4. IBUPROFEN [Concomitant]
     Dosage: 4 DF, BID

REACTIONS (4)
  - Chest discomfort [Recovered/Resolved with Sequelae]
  - Visual impairment [Recovered/Resolved with Sequelae]
  - Dizziness [Recovered/Resolved with Sequelae]
  - Dyspnoea [Recovered/Resolved with Sequelae]
